FAERS Safety Report 14148416 (Version 1)
Quarter: 2017Q4

REPORT INFORMATION
  Report Type: Report from Study
  Country: IN (occurrence: IN)
  Receive Date: 20171101
  Receipt Date: 20171101
  Transmission Date: 20180321
  Serious: Yes (Hospitalization, Other)
  Sender: FDA-Public Use
  Company Number: PHHY2015IN029642

PATIENT
  Sex: Female

DRUGS (1)
  1. GLIVEC [Suspect]
     Active Substance: IMATINIB MESYLATE
     Indication: GASTROINTESTINAL STROMAL TUMOUR
     Dosage: 800 MG, UNK
     Route: 065

REACTIONS (4)
  - Malignant neoplasm progression [Unknown]
  - Recurrent cancer [Unknown]
  - Full blood count decreased [Unknown]
  - Gastrointestinal stromal tumour [Unknown]
